FAERS Safety Report 19421866 (Version 1)
Quarter: 2021Q2

REPORT INFORMATION
  Report Type: Spontaneous
  Country: US (occurrence: US)
  Receive Date: 20210616
  Receipt Date: 20210616
  Transmission Date: 20210717
  Serious: Yes (Other)
  Sender: FDA-Public Use
  Company Number: US-JNJFOC-20210615337

PATIENT
  Sex: Female
  Weight: 86.26 kg

DRUGS (1)
  1. XARELTO [Suspect]
     Active Substance: RIVAROXABAN
     Indication: PRODUCT USED FOR UNKNOWN INDICATION
     Route: 048
     Dates: start: 20210501

REACTIONS (11)
  - Arthralgia [Unknown]
  - White coat hypertension [Unknown]
  - Sleep disorder [Unknown]
  - Thirst [Unknown]
  - Blood magnesium decreased [Unknown]
  - Illness [Unknown]
  - Dizziness [Unknown]
  - Fatigue [Unknown]
  - Blood potassium decreased [Unknown]
  - Knee arthroplasty [Unknown]
  - Depression [Unknown]
